FAERS Safety Report 5101641-9 (Version None)
Quarter: 2006Q3

REPORT INFORMATION
  Report Type: 
  Country: None (occurrence: None)
  Receive Date: 20060731
  Receipt Date: 20060619
  Transmission Date: 20061208
  Serious: No
  Sender: FDA-Public Use
  Company Number: 2006PV015939

PATIENT
  Age: 47 Year
  Sex: Female
  Weight: 133.8111 kg

DRUGS (6)
  1. BYETTA [Suspect]
     Indication: DIABETES MELLITUS NON-INSULIN-DEPENDENT
     Dosage: SEE IMAGE
     Route: 058
     Dates: start: 20050701, end: 20050801
  2. BYETTA [Suspect]
     Indication: DIABETES MELLITUS NON-INSULIN-DEPENDENT
     Dosage: SEE IMAGE
     Route: 058
     Dates: start: 20051101
  3. NOVOLOG [Concomitant]
  4. ACTOS [Concomitant]
  5. ACTOS /USA/ [Concomitant]
  6. LANTUS [Concomitant]

REACTIONS (1)
  - MUSCLE SPASMS [None]
